FAERS Safety Report 18603859 (Version 1)
Quarter: 2020Q4

REPORT INFORMATION
  Report Type: Spontaneous
  Country: CN (occurrence: CN)
  Receive Date: 20201211
  Receipt Date: 20201211
  Transmission Date: 20210114
  Serious: Yes (Hospitalization)
  Sender: FDA-Public Use
  Company Number: CN-ROCHE-2725210

PATIENT
  Age: 72 Year
  Sex: Female
  Weight: 74 kg

DRUGS (6)
  1. GLUCOSE [Concomitant]
     Active Substance: DEXTROSE
     Route: 041
     Dates: start: 20201104, end: 20201105
  2. HERCEPTIN [Suspect]
     Active Substance: TRASTUZUMAB
     Indication: LUNG ADENOCARCINOMA
     Route: 041
     Dates: start: 20201106, end: 20201106
  3. CARBOPLATIN. [Suspect]
     Active Substance: CARBOPLATIN
     Indication: LUNG ADENOCARCINOMA
     Route: 041
     Dates: start: 20201104, end: 20201105
  4. SODIUM CHLORIDE. [Concomitant]
     Active Substance: SODIUM CHLORIDE
     Dosage: SOLVENT FOR PACLITAXEL FOR INJECTION (ALBUMIN BOUND)
     Route: 041
     Dates: start: 20201104, end: 20201104
  5. SODIUM CHLORIDE. [Concomitant]
     Active Substance: SODIUM CHLORIDE
     Route: 041
     Dates: start: 20201106, end: 20201106
  6. PACLITAXEL. [Suspect]
     Active Substance: PACLITAXEL
     Indication: LUNG ADENOCARCINOMA
     Route: 041
     Dates: start: 20201104, end: 20201104

REACTIONS (3)
  - Intentional product use issue [Unknown]
  - Granulocyte count decreased [Recovering/Resolving]
  - Off label use [Unknown]

NARRATIVE: CASE EVENT DATE: 20201110
